FAERS Safety Report 5870896-5 (Version None)
Quarter: 2008Q3

REPORT INFORMATION
  Report Type: 
  Country: None (occurrence: None)
  Receive Date: 20080904
  Receipt Date: 20080829
  Transmission Date: 20090109
  Serious: Yes (Other)
  Sender: FDA-Public Use
  Company Number: US-CELGENEUS-163-20785-08070862

PATIENT
  Sex: Male

DRUGS (2)
  1. THALOMID [Suspect]
     Indication: MULTIPLE MYELOMA
     Route: 048
     Dates: start: 20060914, end: 20080101
  2. THALOMID [Suspect]
     Route: 048
     Dates: start: 20050812, end: 20060901

REACTIONS (2)
  - HIP ARTHROPLASTY [None]
  - WHITE BLOOD CELL COUNT INCREASED [None]
